FAERS Safety Report 6058028-4 (Version None)
Quarter: 2009Q1

REPORT INFORMATION
  Report Type: 
  Country: None (occurrence: None)
  Receive Date: 20090127
  Receipt Date: 20090116
  Transmission Date: 20090719
  Serious: Yes (Hospitalization, Other)
  Sender: FDA-Public Use
  Company Number: CLOF-1000387

PATIENT
  Age: 16 Month
  Sex: Female
  Weight: 9.3 kg

DRUGS (3)
  1. CLOLAR [Suspect]
     Indication: MYELOID LEUKAEMIA
     Dosage: 16.8 MG, QDX5, INTRAVENOUS
     Route: 042
     Dates: start: 20081112, end: 20081116
  2. BUSULFAN (BUSULFAN) [Suspect]
     Indication: MYELOID LEUKAEMIA
     Dosage: 28 MG, QD, INTRAVENOUS
     Route: 042
     Dates: start: 20081113, end: 20081116
  3. PANTOPRAZOLE SODIUM [Concomitant]

REACTIONS (14)
  - ACUTE GRAFT VERSUS HOST DISEASE IN LIVER [None]
  - ACUTE GRAFT VERSUS HOST DISEASE IN SKIN [None]
  - BLOOD LACTATE DEHYDROGENASE INCREASED [None]
  - CYTOMEGALOVIRUS VIRAEMIA [None]
  - HYPOXIA [None]
  - INFECTION [None]
  - LIVER FUNCTION TEST ABNORMAL [None]
  - PLATELET COUNT DECREASED [None]
  - PLEURAL EFFUSION [None]
  - RED BLOOD CELL COUNT DECREASED [None]
  - RETROGRADE PORTAL VEIN FLOW [None]
  - TRANSAMINASES INCREASED [None]
  - VENOOCCLUSIVE DISEASE [None]
  - WEIGHT INCREASED [None]
